FAERS Safety Report 19718528 (Version 1)
Quarter: 2021Q3

REPORT INFORMATION
  Report Type: Spontaneous
  Country: US (occurrence: US)
  Receive Date: 20210819
  Receipt Date: 20210819
  Transmission Date: 20211014
  Serious: Yes (Hospitalization)
  Sender: FDA-Public Use
  Company Number: US-JNJFOC-20210825739

PATIENT
  Age: 15 Year
  Sex: Female

DRUGS (1)
  1. MICRONOR [Suspect]
     Active Substance: NORETHINDRONE
     Indication: HEAVY MENSTRUAL BLEEDING
     Route: 048

REACTIONS (5)
  - Shock haemorrhagic [Recovered/Resolved]
  - Product use in unapproved indication [Unknown]
  - Withdrawal bleed [Recovered/Resolved]
  - Off label use [Unknown]
  - Hepatic adenoma [Recovering/Resolving]
